FAERS Safety Report 7017004-5 (Version None)
Quarter: 2010Q3

REPORT INFORMATION
  Report Type: 
  Country: None (occurrence: None)
  Receive Date: 20100927
  Receipt Date: 20100920
  Transmission Date: 20110219
  Serious: No
  Sender: FDA-Public Use
  Company Number: US-PFIZER INC-2010114332

PATIENT
  Sex: Male
  Weight: 86 kg

DRUGS (5)
  1. ALPRAZOLAM [Suspect]
     Indication: ANXIETY
     Dosage: 0.05 MG, 1X/DAY
     Route: 048
     Dates: start: 20100801, end: 20100908
  2. LOTREL [Concomitant]
     Indication: HYPERTENSION
     Dosage: UNK
  3. TOPROL-XL [Concomitant]
     Dosage: 100 MG, UNK
  4. PROPAFENONE [Concomitant]
     Dosage: UNK
  5. CLARITIN [Concomitant]
     Indication: HYPERSENSITIVITY
     Dosage: UNK

REACTIONS (6)
  - DRUG INTERACTION [None]
  - HANGOVER [None]
  - INFLUENZA LIKE ILLNESS [None]
  - MALAISE [None]
  - PYREXIA [None]
  - TINNITUS [None]
